FAERS Safety Report 10102074 (Version 3)
Quarter: 2014Q2

REPORT INFORMATION
  Report Type: Report from Study
  Country: GB (occurrence: GB)
  Receive Date: 20140424
  Receipt Date: 20140529
  Transmission Date: 20141212
  Serious: Yes (Hospitalization)
  Sender: FDA-Public Use
  Company Number: GB-PFIZER INC-2014107991

PATIENT
  Age: 41 Year
  Sex: Female
  Weight: 68 kg

DRUGS (3)
  1. CRIZOTINIB [Suspect]
     Indication: ALVEOLAR SOFT PART SARCOMA
     Dosage: 250 MG, 2X/DAY
     Route: 048
     Dates: start: 20140131, end: 20140408
  2. CODEINE PHOSPHATE [Suspect]
     Indication: DIARRHOEA
     Dosage: 15 MG, 1X/DAY
     Route: 048
     Dates: start: 20140403
  3. LOPERAMIDE [Concomitant]
     Indication: DIARRHOEA
     Dosage: 15 MG, 1X/DAY
     Route: 048
     Dates: start: 20140403

REACTIONS (2)
  - Abdominal pain [Recovered/Resolved]
  - Abdominal distension [Recovered/Resolved]
